FAERS Safety Report 20815048 (Version 2)
Quarter: 2022Q2

REPORT INFORMATION
  Report Type: Spontaneous
  Country: US (occurrence: US)
  Receive Date: 20220511
  Receipt Date: 20220615
  Transmission Date: 20220720
  Serious: No
  Sender: FDA-Public Use
  Company Number: US-PFIZER INC-202101781190

PATIENT
  Age: 55 Year
  Sex: Male

DRUGS (4)
  1. XELJANZ XR [Suspect]
     Active Substance: TOFACITINIB CITRATE
     Dosage: 11 MG, 1X/DAY
     Route: 048
     Dates: start: 2021
  2. XELJANZ XR [Suspect]
     Active Substance: TOFACITINIB CITRATE
     Dosage: 11 MG, 1X/DAY [TAKE 1 TABLET BY MOUTH ONCE DAILY]
     Route: 048
  3. VITAMIN D3 [Concomitant]
     Active Substance: CHOLECALCIFEROL
     Dosage: UNK
  4. PREDNISONE [Concomitant]
     Active Substance: PREDNISONE
     Dosage: UNK

REACTIONS (8)
  - Product dose omission issue [Not Recovered/Not Resolved]
  - Pain [Unknown]
  - Product dispensing error [Unknown]
  - Rash [Unknown]
  - Headache [Unknown]
  - Cough [Unknown]
  - Suspected COVID-19 [Unknown]
  - Dyspnoea [Unknown]
